FAERS Safety Report 6618774-8 (Version None)
Quarter: 2010Q1

REPORT INFORMATION
  Report Type: 
  Country: None (occurrence: None)
  Receive Date: 20100308
  Receipt Date: 20100301
  Transmission Date: 20100710
  Serious: Yes (Other)
  Sender: FDA-Public Use
  Company Number: US-BRISTOL-MYERS SQUIBB COMPANY-14996755

PATIENT
  Age: 49 Year
  Sex: Male
  Weight: 118 kg

DRUGS (1)
  1. ERBITUX [Suspect]
     Indication: TONSIL CANCER

REACTIONS (1)
  - EMBOLISM [None]
